FAERS Safety Report 12207397 (Version 2)
Quarter: 2016Q2

REPORT INFORMATION
  Report Type: Spontaneous
  Country: HR (occurrence: HR)
  Receive Date: 20160324
  Receipt Date: 20160405
  Transmission Date: 20160815
  Serious: Yes (Hospitalization)
  Sender: FDA-Public Use
  Company Number: HR-PFIZER INC-2016169886

PATIENT
  Age: 73 Year
  Sex: Male

DRUGS (8)
  1. CORDARONE [Suspect]
     Active Substance: AMIODARONE HYDROCHLORIDE
     Dosage: 200 MG, 2X/DAY
     Route: 048
     Dates: start: 201409
  2. LIPEX [Suspect]
     Active Substance: SIMVASTATIN
     Dosage: 40 MG, DAILY
     Route: 048
     Dates: start: 2008
  3. KALINOR [Concomitant]
     Active Substance: POTASSIUM CITRATE
     Indication: HYPOKALAEMIA
     Dosage: UNK
     Dates: start: 20080101
  4. TRITACE [Concomitant]
     Active Substance: RAMIPRIL
     Dosage: UNK
     Dates: start: 20080101
  5. BETALOC ZOK [Concomitant]
     Active Substance: METOPROLOL SUCCINATE
     Dosage: UNK
     Dates: start: 2008
  6. FUROSEMID [Concomitant]
     Active Substance: FUROSEMIDE
     Indication: CONGESTIVE CARDIOMYOPATHY
     Dosage: UNK
     Dates: start: 2008
  7. CORDARONE [Suspect]
     Active Substance: AMIODARONE HYDROCHLORIDE
     Indication: VENTRICULAR TACHYCARDIA
     Dosage: 200 MG, 2X/DAY
     Route: 048
     Dates: start: 20080302, end: 201403
  8. ASPIRIN PROTECT [Concomitant]
     Active Substance: ASPIRIN
     Dosage: UNK
     Dates: start: 20080101

REACTIONS (6)
  - Keratopathy [Recovering/Resolving]
  - Tremor [Recovering/Resolving]
  - Skin hyperpigmentation [Recovering/Resolving]
  - Dyspnoea [Recovering/Resolving]
  - Extrapyramidal disorder [Recovering/Resolving]
  - Pneumonitis [Recovering/Resolving]

NARRATIVE: CASE EVENT DATE: 20140301
